FAERS Safety Report 5115837-3 (Version None)
Quarter: 2006Q3

REPORT INFORMATION
  Report Type: 
  Country: None (occurrence: None)
  Receive Date: 20060925
  Receipt Date: 20060912
  Transmission Date: 20061208
  Serious: Yes (Hospitalization, Other)
  Sender: FDA-Public Use
  Company Number: 2005024250

PATIENT
  Age: 50 Year
  Sex: Female
  Weight: 145.151 kg

DRUGS (5)
  1. CELEBREX [Suspect]
     Indication: MUSCULOSKELETAL PAIN
     Dosage: 200  MG (200 MG, 1 IN 1 D), ORAL
     Route: 048
     Dates: start: 20010123, end: 20021001
  2. CELEBREX [Suspect]
     Indication: PAIN IN EXTREMITY
     Dosage: 200  MG (200 MG, 1 IN 1 D), ORAL
     Route: 048
     Dates: start: 20010123, end: 20021001
  3. TOPROL-XL [Concomitant]
  4. MOBIC [Concomitant]
  5. PRILOSEC [Concomitant]

REACTIONS (7)
  - ANGIOPATHY [None]
  - CEREBRAL INFARCTION [None]
  - CEREBROVASCULAR ACCIDENT [None]
  - KNEE ARTHROPLASTY [None]
  - POST PROCEDURAL COMPLICATION [None]
  - PULMONARY EMBOLISM [None]
  - THROMBOSIS [None]
